FAERS Safety Report 13859748 (Version 1)
Quarter: 2017Q3

REPORT INFORMATION
  Report Type: Spontaneous
  Country: US (occurrence: US)
  Receive Date: 20170811
  Receipt Date: 20170811
  Transmission Date: 20171127
  Serious: No
  Sender: FDA-Public Use
  Company Number: US-PFIZER INC-2017349237

PATIENT
  Age: 56 Year
  Sex: Female
  Weight: 96.16 kg

DRUGS (2)
  1. PRINZIDE, ZESTORETIC [Concomitant]
     Indication: HYPERTENSION
     Dosage: [HYDROCHLOROTHIAZIDE 12.5MG]/[LISINOPRIL 10MG], 1X/DAY
  2. LYRICA [Suspect]
     Active Substance: PREGABALIN
     Indication: HERPES ZOSTER
     Dosage: TABLET TAKEN TWICE A DAY
     Dates: start: 201703

REACTIONS (2)
  - Herpes zoster [Unknown]
  - Condition aggravated [Unknown]
